FAERS Safety Report 7780186-1 (Version None)
Quarter: 2011Q3

REPORT INFORMATION
  Report Type: 
  Country: None (occurrence: None)
  Receive Date: 20110927
  Receipt Date: 20110927
  Transmission Date: 20111222
  Serious: Yes (Hospitalization, Other)
  Sender: FDA-Public Use
  Company Number: None

PATIENT
  Age: 33 Year
  Sex: Female
  Weight: 47.627 kg

DRUGS (2)
  1. SINGULAIR [Concomitant]
  2. HALDOL [Suspect]
     Indication: AGITATION
     Dosage: 5MG
     Route: 041
     Dates: start: 20100426, end: 20100426

REACTIONS (10)
  - OVERDOSE [None]
  - SPEECH DISORDER [None]
  - DYSPHAGIA [None]
  - HEART RATE IRREGULAR [None]
  - MUSCULAR WEAKNESS [None]
  - PNEUMONIA [None]
  - TREMOR [None]
  - DEHYDRATION [None]
  - MOVEMENT DISORDER [None]
  - POSTURE ABNORMAL [None]
